FAERS Safety Report 4440675-4 (Version None)
Quarter: 2004Q3

REPORT INFORMATION
  Report Type: 
  Country: None (occurrence: None)
  Receive Date: 20040903
  Receipt Date: 20040826
  Transmission Date: 20050211
  Serious: Yes (Other)
  Sender: FDA-Public Use
  Company Number: BE-JNJFOC-20040900050

PATIENT
  Age: 1 Month
  Sex: Male

DRUGS (1)
  1. PROPULSID [Suspect]
     Route: 049
     Dates: start: 20040728, end: 20040801

REACTIONS (1)
  - ELECTROCARDIOGRAM QT PROLONGED [None]
